FAERS Safety Report 9228929 (Version 1)
Quarter: 2013Q2

REPORT INFORMATION
  Report Type: Spontaneous
  Country: FR (occurrence: FR)
  Receive Date: 20130412
  Receipt Date: 20130412
  Transmission Date: 20140414
  Serious: Yes (Hospitalization)
  Sender: FDA-Public Use
  Company Number: PHHY2013FR022801

PATIENT
  Age: 26 Year
  Sex: Male

DRUGS (5)
  1. RISPERIDONE [Suspect]
     Indication: SCHIZOPHRENIA, PARANOID TYPE
  2. HALOPERIDOL [Suspect]
     Indication: SCHIZOPHRENIA, PARANOID TYPE
  3. CLOPIXOL ASP [Suspect]
     Indication: SCHIZOPHRENIA, PARANOID TYPE
     Dosage: 2 DF, UNK
  4. CYAMEMAZINE [Suspect]
     Indication: SCHIZOPHRENIA, PARANOID TYPE
  5. ALIMEMAZINE [Suspect]
     Indication: SCHIZOPHRENIA, PARANOID TYPE

REACTIONS (2)
  - Rhabdomyolysis [Recovered/Resolved]
  - Pain in extremity [Recovered/Resolved]
